FAERS Safety Report 16371516 (Version 1)
Quarter: 2019Q2

REPORT INFORMATION
  Report Type: Spontaneous
  Country: US (occurrence: US)
  Receive Date: 20190424
  Receipt Date: 20190424
  Transmission Date: 20190711
  Serious: No
  Sender: FDA-Public Use
  Company Number: None

PATIENT
  Sex: Female

DRUGS (5)
  1. HUMIRA [Suspect]
     Active Substance: ADALIMUMAB
     Indication: RHEUMATOID ARTHRITIS
     Dosage: SC INJECTION IN THE THIGH OR ABDOMEN
     Dates: start: 20151022
  2. METHOTREXATE. [Concomitant]
     Active Substance: METHOTREXATE
  3. XANAX [Concomitant]
     Active Substance: ALPRAZOLAM
  4. FOLIC ACID. [Concomitant]
     Active Substance: FOLIC ACID
  5. CALCIUM GLUCONATE. [Concomitant]
     Active Substance: CALCIUM GLUCONATE

REACTIONS (1)
  - Spinal operation [None]
